FAERS Safety Report 7115100-5 (Version None)
Quarter: 2010Q4

REPORT INFORMATION
  Report Type: 
  Country: None (occurrence: None)
  Receive Date: 20101116
  Receipt Date: 20101116
  Transmission Date: 20110411
  Serious: Yes (Death)
  Sender: FDA-Public Use
  Company Number: None

PATIENT
  Age: 67 Year
  Sex: Female

DRUGS (13)
  1. REVLIMID [Suspect]
     Indication: MULTIPLE MYELOMA
     Dosage: 15MG QOD 21D/28D ORALLY
     Route: 048
  2. DECADRON [Concomitant]
  3. FENTANYL [Concomitant]
  4. ZOFRAN [Concomitant]
  5. DILAUDID [Concomitant]
  6. ZOCOR [Concomitant]
  7. ZOLOFT [Concomitant]
  8. ALBUTEROL [Concomitant]
  9. METOPROLOL [Concomitant]
  10. NORVASC [Concomitant]
  11. LASIX [Concomitant]
  12. ELAVIL [Concomitant]
  13. WARFARIN SODIUM [Concomitant]

REACTIONS (1)
  - BONE MARROW FAILURE [None]
